FAERS Safety Report 11390337 (Version 1)
Quarter: 2015Q3

REPORT INFORMATION
  Report Type: Spontaneous
  Country: US (occurrence: US)
  Receive Date: 20150818
  Receipt Date: 20150818
  Transmission Date: 20151125
  Serious: No
  Sender: FDA-Public Use
  Company Number: US-009507513-1508USA006343

PATIENT
  Sex: Female

DRUGS (2)
  1. HEXADROL [Suspect]
     Active Substance: DEXAMETHASONE
     Indication: CONGENITAL APLASTIC ANAEMIA
     Route: 048
  2. PREDNISONE. [Concomitant]
     Active Substance: PREDNISONE
     Indication: CONGENITAL APLASTIC ANAEMIA
     Route: 048

REACTIONS (1)
  - Drug ineffective [Unknown]
